FAERS Safety Report 17073523 (Version 6)
Quarter: 2020Q2

REPORT INFORMATION
  Report Type: Report from Study
  Country: AU (occurrence: AU)
  Receive Date: 20191126
  Receipt Date: 20200430
  Transmission Date: 20200713
  Serious: Yes (Death, Hospitalization, Other)
  Sender: FDA-Public Use
  Company Number: AU-BIOGEN-2019BI00810057

PATIENT
  Age: 60 Year
  Sex: Male

DRUGS (2)
  1. TYSABRI [Suspect]
     Active Substance: NATALIZUMAB
     Route: 042
  2. TYSABRI [Suspect]
     Active Substance: NATALIZUMAB
     Indication: MULTIPLE SCLEROSIS
     Dosage: INFUSED OVER 1 HOUR
     Route: 042
     Dates: start: 20170526, end: 20190620

REACTIONS (10)
  - Myocardial infarction [Fatal]
  - Neutrophil count increased [Unknown]
  - C-reactive protein increased [Unknown]
  - Myalgia [Unknown]
  - Escherichia sepsis [Unknown]
  - Bacteroides test positive [Unknown]
  - White blood cell count increased [Unknown]
  - Coronary artery occlusion [Fatal]
  - Immunosuppression [Unknown]
  - Cardiac arrest [Fatal]

NARRATIVE: CASE EVENT DATE: 20190703
